FAERS Safety Report 8004891-7 (Version None)
Quarter: 2011Q4

REPORT INFORMATION
  Report Type: 
  Country: None (occurrence: None)
  Receive Date: 20111223
  Receipt Date: 20111223
  Transmission Date: 20120403
  Serious: Yes (Hospitalization)
  Sender: FDA-Public Use
  Company Number: None

PATIENT
  Age: 57 Year
  Sex: Female
  Weight: 84 kg

DRUGS (1)
  1. FUROSEMIDE [Suspect]
     Dosage: 40MG
     Route: 048

REACTIONS (1)
  - BLOOD POTASSIUM DECREASED [None]
